FAERS Safety Report 16059096 (Version 1)
Quarter: 2019Q1

REPORT INFORMATION
  Report Type: Spontaneous
  Country: PT (occurrence: PT)
  Receive Date: 20190311
  Receipt Date: 20190311
  Transmission Date: 20190418
  Serious: Yes (Other)
  Sender: FDA-Public Use
  Company Number: PHHY2019PT052472

PATIENT
  Age: 73 Year
  Sex: Female

DRUGS (1)
  1. ACLASTA [Suspect]
     Active Substance: ZOLEDRONIC ACID
     Indication: OSTEOPOROSIS
     Dosage: 1 DF, Q12MO
     Route: 042
     Dates: start: 20190222

REACTIONS (6)
  - Chest pain [Unknown]
  - Influenza like illness [Unknown]
  - Headache [Unknown]
  - Pain [Unknown]
  - Pyrexia [Unknown]
  - Oesophageal pain [Unknown]

NARRATIVE: CASE EVENT DATE: 20190222
